FAERS Safety Report 7322663-3 (Version None)
Quarter: 2011Q1

REPORT INFORMATION
  Report Type: 
  Country: None (occurrence: None)
  Receive Date: 20110301
  Receipt Date: 20110222
  Transmission Date: 20110831
  Serious: No
  Sender: FDA-Public Use
  Company Number: US-PFIZER INC-2011037723

PATIENT
  Sex: Female
  Weight: 45.351 kg

DRUGS (1)
  1. LYRICA [Suspect]
     Indication: NEURALGIA
     Dosage: 150 MG, UNK

REACTIONS (8)
  - CONSTIPATION [None]
  - DRUG INEFFECTIVE [None]
  - SOMNOLENCE [None]
  - GASTROINTESTINAL PAIN [None]
  - ABDOMINAL DISTENSION [None]
  - NEURALGIA [None]
  - WEIGHT INCREASED [None]
  - MALAISE [None]
